FAERS Safety Report 21928153 (Version 1)
Quarter: 2023Q1

REPORT INFORMATION
  Report Type: Spontaneous
  Country: FR (occurrence: FR)
  Receive Date: 20230130
  Receipt Date: 20230130
  Transmission Date: 20230418
  Serious: Yes (Other)
  Sender: FDA-Public Use
  Company Number: FR-PFIZER INC-202300035698

PATIENT
  Age: 90 Year
  Sex: Male

DRUGS (1)
  1. ATRACURIUM BESYLATE [Suspect]
     Active Substance: ATRACURIUM BESYLATE
     Indication: Anaesthesia
     Dosage: 35 MG

REACTIONS (2)
  - Respiratory failure [Recovered/Resolved]
  - Recurrence of neuromuscular blockade [Recovered/Resolved]
